FAERS Safety Report 15105846 (Version 1)
Quarter: 2018Q3

REPORT INFORMATION
  Report Type: Spontaneous
  Country: FR (occurrence: FR)
  Receive Date: 20180704
  Receipt Date: 20180704
  Transmission Date: 20181010
  Serious: Yes (Other)
  Sender: FDA-Public Use
  Company Number: FR-ACCORD-069116

PATIENT
  Age: 55 Year
  Sex: Male
  Weight: 105 kg

DRUGS (10)
  1. ESOMEPRAZOLE [Concomitant]
     Active Substance: ESOMEPRAZOLE
     Route: 048
     Dates: start: 201712
  2. LEVETIRACETAM. [Concomitant]
     Active Substance: LEVETIRACETAM
     Route: 048
     Dates: start: 201711
  3. CLORAZEPIC ACID [Concomitant]
     Active Substance: CLORAZEPIC ACID
     Indication: PROPHYLAXIS OF NAUSEA AND VOMITING
     Route: 040
     Dates: start: 20180201, end: 20180201
  4. FOLIC ACID. [Concomitant]
     Active Substance: FOLIC ACID
     Route: 048
     Dates: start: 20180124
  5. GRANISETRON [Concomitant]
     Active Substance: GRANISETRON
     Indication: PROPHYLAXIS OF NAUSEA AND VOMITING
     Dosage: SOLUTION FOR INJECTION FOR INTRAVENOUS USE
     Route: 040
     Dates: start: 20180201, end: 20180201
  6. CISPLATIN. [Suspect]
     Active Substance: CISPLATIN
     Indication: METASTATIC BRONCHIAL CARCINOMA
     Route: 042
     Dates: start: 20180201, end: 20180315
  7. PEMETREXED. [Suspect]
     Active Substance: PEMETREXED
     Indication: METASTATIC BRONCHIAL CARCINOMA
     Route: 042
     Dates: start: 20180201
  8. NICOTINE. [Concomitant]
     Active Substance: NICOTINE
     Route: 062
     Dates: start: 201711, end: 20180315
  9. CHLORPROMAZINE. [Concomitant]
     Active Substance: CHLORPROMAZINE
     Indication: PROPHYLAXIS OF NAUSEA AND VOMITING
     Route: 040
     Dates: start: 20180201, end: 20180201
  10. LAMIVUDINE. [Concomitant]
     Active Substance: LAMIVUDINE
     Route: 048
     Dates: start: 20180201, end: 20180203

REACTIONS (2)
  - Rash pruritic [Recovered/Resolved]
  - Renal failure [Not Recovered/Not Resolved]

NARRATIVE: CASE EVENT DATE: 20180202
